FAERS Safety Report 24363185 (Version 1)
Quarter: 2024Q3

REPORT INFORMATION
  Report Type: Report from Study
  Country: US (occurrence: US)
  Receive Date: 20240925
  Receipt Date: 20240925
  Transmission Date: 20241016
  Serious: Yes (Other)
  Sender: JOHNSON AND JOHNSON
  Company Number: US-JNJFOC-20240958350

PATIENT
  Sex: Female

DRUGS (7)
  1. SPRAVATO [Suspect]
     Active Substance: ESKETAMINE
     Indication: Depression
     Dosage: 56 MG,1 TOTAL DOSES
     Dates: start: 20190612, end: 20190612
  2. SPRAVATO [Suspect]
     Active Substance: ESKETAMINE
     Dosage: 84 MG,5 TOTAL DOSES
     Dates: start: 20190614, end: 20190701
  3. SPRAVATO [Suspect]
     Active Substance: ESKETAMINE
     Dosage: 56 MG,1 TOTAL DOSES
     Dates: start: 20240830, end: 20240830
  4. SPRAVATO [Suspect]
     Active Substance: ESKETAMINE
     Dosage: 84 MG,1 TOTAL DOSES
     Dates: start: 20190905, end: 20190905
  5. SPRAVATO [Suspect]
     Active Substance: ESKETAMINE
     Dosage: 56 MG,1 TOTAL DOSES
     Dates: start: 20240710, end: 20240710
  6. SPRAVATO [Suspect]
     Active Substance: ESKETAMINE
     Dosage: 84 MG,3 TOTAL DOSES
     Dates: start: 20240712, end: 20240719
  7. PROZAC [Concomitant]
     Active Substance: FLUOXETINE HYDROCHLORIDE
     Route: 065
     Dates: start: 20220127

REACTIONS (1)
  - Neuropathy peripheral [Unknown]
